FAERS Safety Report 6524130-3 (Version None)
Quarter: 2009Q4

REPORT INFORMATION
  Report Type: 
  Country: None (occurrence: None)
  Receive Date: 20091230
  Receipt Date: 20091230
  Transmission Date: 20100525
  Serious: No
  Sender: FDA-Public Use
  Company Number: None

PATIENT
  Age: 84 Year
  Sex: Male

DRUGS (6)
  1. QVAR 80 [Suspect]
     Indication: CHRONIC OBSTRUCTIVE PULMONARY DISEASE
     Dosage: 2 PUFFS BID DECREASED TO 1 PUFF BID X 1 WK THEN 1 PUFF DAILY
     Route: 055
     Dates: start: 20090730
  2. QVAR 80 [Suspect]
     Indication: EMPYEMA
     Dosage: 2 PUFFS BID DECREASED TO 1 PUFF BID X 1 WK THEN 1 PUFF DAILY
     Route: 055
     Dates: start: 20090730
  3. QVAR 80 [Suspect]
     Indication: PNEUMONIA
     Dosage: 2 PUFFS BID DECREASED TO 1 PUFF BID X 1 WK THEN 1 PUFF DAILY
     Route: 055
     Dates: start: 20090730
  4. RIFAMPIN [Concomitant]
  5. COUMADIN [Concomitant]
  6. L-THYROXIN [Concomitant]

REACTIONS (2)
  - RASH PAPULAR [None]
  - SKIN WRINKLING [None]
